FAERS Safety Report 24774098 (Version 1)
Quarter: 2024Q4

REPORT INFORMATION
  Report Type: Spontaneous
  Country: US (occurrence: US)
  Receive Date: 20241225
  Receipt Date: 20241225
  Transmission Date: 20250114
  Serious: No
  Sender: SANOFI AVENTIS
  Company Number: US-SA-2024SA379654

PATIENT
  Age: 64 Year
  Sex: Male
  Weight: 79.55 kg

DRUGS (4)
  1. DUPIXENT [Suspect]
     Active Substance: DUPILUMAB
     Indication: Eosinophilic oesophagitis
     Dosage: 300 MG, QW
     Route: 058
     Dates: start: 202407
  2. RADICAVA [Suspect]
     Active Substance: EDARAVONE
     Dosage: UNK
  3. VITAMINS [Concomitant]
     Active Substance: VITAMINS
  4. SIMVASTATIN [Concomitant]
     Active Substance: SIMVASTATIN

REACTIONS (2)
  - Muscle twitching [Unknown]
  - Tremor [Unknown]

NARRATIVE: CASE EVENT DATE: 20240101
